FAERS Safety Report 4340070-2 (Version None)
Quarter: 2004Q2

REPORT INFORMATION
  Report Type: 
  Country: None (occurrence: None)
  Receive Date: 20040415
  Receipt Date: 20040415
  Transmission Date: 20050107
  Serious: Yes (Hospitalization)
  Sender: FDA-Public Use
  Company Number: None

PATIENT
  Age: 66 Year
  Sex: Female
  Weight: 56.8 kg

DRUGS (10)
  1. WARFARIN SODIUM [Suspect]
     Indication: DEEP VEIN THROMBOSIS
     Dosage: 10 MG DAILY ORAL
     Route: 048
     Dates: start: 20021202, end: 20031202
  2. DEPAKOTE ER [Suspect]
     Indication: BIPOLAR DISORDER
     Dosage: 1000 MG XR DAILY  ORAL
     Route: 048
     Dates: start: 20031102, end: 20031202
  3. PROZAC [Concomitant]
  4. PERCOCET [Concomitant]
  5. MAGOX [Concomitant]
  6. M.V.I. [Concomitant]
  7. RITALIN [Concomitant]
  8. BUMEX [Concomitant]
  9. MS CONTIN [Concomitant]
  10. ZYPREXA [Concomitant]

REACTIONS (3)
  - CONTUSION [None]
  - EPISTAXIS [None]
  - INTERNATIONAL NORMALISED RATIO INCREASED [None]
